FAERS Safety Report 7872507-6 (Version None)
Quarter: 2011Q4

REPORT INFORMATION
  Report Type: 
  Country: None (occurrence: None)
  Receive Date: 20111030
  Receipt Date: 20110427
  Transmission Date: 20120403
  Serious: No
  Sender: FDA-Public Use
  Company Number: US-AMGEN-USASP2011022148

PATIENT
  Age: 64 Year
  Sex: Male
  Weight: 91.61 kg

DRUGS (10)
  1. ATENOLOL [Concomitant]
     Dosage: 25 MG, UNK
  2. CO Q-10 [Concomitant]
  3. OMEGA 3                            /00931501/ [Concomitant]
     Dosage: 340 MG, UNK
  4. METHOTREXATE [Concomitant]
     Dosage: 2.5 MG, UNK
  5. TERAZOSIN HCL [Concomitant]
     Dosage: 1 MG, UNK
  6. TRIAMTERENE AND HYDROCHLOROTHIAZIDE [Concomitant]
  7. ENBREL [Suspect]
     Indication: PRODUCT USED FOR UNKNOWN INDICATION
     Dosage: 50 MG, QWK
     Route: 058
  8. CENTRUM                            /00554501/ [Concomitant]
  9. LISINOPRIL [Concomitant]
     Dosage: 2.5 MG, UNK
  10. FOLIC ACID [Concomitant]
     Dosage: 1 MG, UNK

REACTIONS (1)
  - DYSPHAGIA [None]
